FAERS Safety Report 21495135 (Version 4)
Quarter: 2022Q4

REPORT INFORMATION
  Report Type: Spontaneous
  Country: CA (occurrence: CA)
  Receive Date: 20221022
  Receipt Date: 20221201
  Transmission Date: 20230112
  Serious: Yes (Hospitalization, Other)
  Sender: FDA-Public Use
  Company Number: CA-CELLTRION INC.-2021CA012776

PATIENT

DRUGS (14)
  1. INFLECTRA [Suspect]
     Active Substance: INFLIXIMAB-DYYB
     Indication: Crohn^s disease
     Dosage: 10 MG/KG Q 0, 2, 6 WEEK DOSE AND THEN Q 8 WEEKS
     Route: 042
     Dates: start: 20210608, end: 20221012
  2. INFLECTRA [Suspect]
     Active Substance: INFLIXIMAB-DYYB
     Dosage: 500 MG
     Route: 042
     Dates: start: 20210913
  3. INFLECTRA [Suspect]
     Active Substance: INFLIXIMAB-DYYB
     Dosage: 10 MG/KG Q 0, 2, 6 WEEK DOSE AND THEN Q 8 WEEKS
     Route: 042
     Dates: start: 20211109
  4. INFLECTRA [Suspect]
     Active Substance: INFLIXIMAB-DYYB
     Dosage: 10 MG/KG Q 0, 2, 6 WEEK DOSE AND THEN Q 8 WEEKS
     Route: 042
     Dates: start: 20220105
  5. INFLECTRA [Suspect]
     Active Substance: INFLIXIMAB-DYYB
     Dosage: 10 MG/KG Q 0, 2, 6 WEEK DOSE AND THEN Q 8 WEEKS
     Route: 042
     Dates: start: 20220429
  6. INFLECTRA [Suspect]
     Active Substance: INFLIXIMAB-DYYB
     Dosage: 10 MG/KG Q 0, 2, 6 WEEK DOSE AND THEN Q 8 WEEKS
     Route: 042
     Dates: start: 20220623
  7. INFLECTRA [Suspect]
     Active Substance: INFLIXIMAB-DYYB
     Dosage: 10 MG/KG Q 0, 2, 6 WEEK DOSE AND THEN Q 8 WEEKS
     Route: 042
     Dates: start: 20220822
  8. INFLECTRA [Suspect]
     Active Substance: INFLIXIMAB-DYYB
     Dosage: 10 MG/KG Q 0, 2, 6 WEEK DOSE AND THEN Q 8 WEEKS
     Route: 042
     Dates: start: 20221012
  9. INFLECTRA [Suspect]
     Active Substance: INFLIXIMAB-DYYB
     Dosage: 10 MG/KG, EVERY 6 WEEK(NOT STARTED YET)
     Route: 042
  10. INFLECTRA [Suspect]
     Active Substance: INFLIXIMAB-DYYB
     Dosage: UNK RECEIVED A DOSE OF INFLECTRA IN HOSPITAL
     Dates: start: 202210
  11. INFLECTRA [Suspect]
     Active Substance: INFLIXIMAB-DYYB
     Dosage: 500 MG (PATIENT IS SUPPOSED TO RECEIVE 10 MG/KG (510MG)), EVERY 4 WEEK
     Route: 042
     Dates: start: 20221121
  12. INFLECTRA [Suspect]
     Active Substance: INFLIXIMAB-DYYB
     Dosage: 500 MG (PATIENT IS SUPPOSED TO RECEIVE 10 MG/KG (510MG)), EVERY 4 WEEK
     Route: 042
     Dates: start: 20221121
  13. PREDNISONE [Concomitant]
     Active Substance: PREDNISONE
     Dosage: 1 DF, DOSAGE INFORMATION NOT AVAILABLE
     Route: 065
  14. PREDNISONE [Concomitant]
     Active Substance: PREDNISONE
     Dosage: 30 MG, 1X/DAY WEANED OFF

REACTIONS (15)
  - Condition aggravated [Recovered/Resolved]
  - Uveitis [Unknown]
  - Therapeutic response shortened [Unknown]
  - Inappropriate schedule of product administration [Unknown]
  - Off label use [Unknown]
  - Off label use [Unknown]
  - Off label use [Unknown]
  - Intentional product use issue [Unknown]
  - Incorrect dose administered [Unknown]
  - COVID-19 [Not Recovered/Not Resolved]
  - Weight decreased [Unknown]
  - Aphthous ulcer [Unknown]
  - Anal fissure [Unknown]
  - Condition aggravated [Recovered/Resolved]
  - C-reactive protein increased [Not Recovered/Not Resolved]

NARRATIVE: CASE EVENT DATE: 20210608
